FAERS Safety Report 6143341-2 (Version None)
Quarter: 2009Q2

REPORT INFORMATION
  Report Type: 
  Country: None (occurrence: None)
  Receive Date: 20090403
  Receipt Date: 20090331
  Transmission Date: 20091009
  Serious: Yes (Death)
  Sender: FDA-Public Use
  Company Number: B0567725A

PATIENT
  Age: 46 Year
  Sex: Male

DRUGS (1)
  1. RELENZA [Suspect]
     Indication: HYPERTHERMIA
     Route: 055

REACTIONS (3)
  - CARDIO-RESPIRATORY ARREST [None]
  - DYSPNOEA [None]
  - LUNG INFILTRATION [None]
